FAERS Safety Report 4295489-5 (Version None)
Quarter: 2004Q1

REPORT INFORMATION
  Report Type: 
  Country: None (occurrence: None)
  Receive Date: 20040216
  Receipt Date: 20030711
  Transmission Date: 20041129
  Serious: No
  Sender: FDA-Public Use
  Company Number: US-GLAXOSMITHKLINE-A0416368A

PATIENT
  Age: 89 Year
  Sex: Female

DRUGS (4)
  1. PAXIL [Suspect]
     Indication: DEPRESSION
     Route: 048
  2. DIAZEPAM [Concomitant]
  3. DARVOCET-N 100 [Concomitant]
  4. WARFARIN SODIUM [Concomitant]

REACTIONS (4)
  - ANXIETY [None]
  - BACK PAIN [None]
  - FALL [None]
  - INSOMNIA [None]
